FAERS Safety Report 9028506 (Version 3)
Quarter: 2013Q1

REPORT INFORMATION
  Report Type: Spontaneous
  Country: AU (occurrence: AU)
  Receive Date: 20130124
  Receipt Date: 20130314
  Transmission Date: 20140127
  Serious: Yes (Other)
  Sender: FDA-Public Use
  Company Number: PHHY2013AU006553

PATIENT
  Age: 85 Year
  Sex: Male

DRUGS (6)
  1. ACLASTA [Suspect]
     Indication: OSTEOPOROSIS
     Dosage: 5 MG, UNK
     Route: 042
     Dates: start: 20090528
  2. ACLASTA [Suspect]
     Dosage: 5 MG, UNK
     Route: 042
     Dates: start: 20111107
  3. ARICEPT [Concomitant]
     Indication: DEMENTIA
     Dosage: 5 MG, UNK
     Route: 048
     Dates: start: 20110115
  4. RISPERDAL [Concomitant]
     Indication: ABNORMAL BEHAVIOUR
     Dosage: 0.5 MG, UNK
     Route: 048
     Dates: start: 20120222
  5. CLOPIDOGREL [Concomitant]
     Indication: CARDIAC ARREST
     Dosage: 75 MG, UNK
     Route: 048
     Dates: start: 20100816
  6. PRAVACHOL [Concomitant]
     Indication: HYPERCHOLESTEROLAEMIA
     Dosage: 40 MG, UNK
     Route: 048
     Dates: start: 20040522

REACTIONS (2)
  - Dementia Alzheimer^s type [Not Recovered/Not Resolved]
  - General physical health deterioration [Not Recovered/Not Resolved]
